FAERS Safety Report 17877321 (Version 1)
Quarter: 2020Q2

REPORT INFORMATION
  Report Type: Spontaneous
  Country: DK (occurrence: DK)
  Receive Date: 20200609
  Receipt Date: 20200609
  Transmission Date: 20200714
  Serious: Yes (Life-Threatening)
  Sender: FDA-Public Use
  Company Number: DK-MYLANLABS-2020M1055542

PATIENT
  Age: 2 Day
  Sex: Male
  Weight: 3.74 kg

DRUGS (5)
  1. FUROSEMID ACCORD [Concomitant]
     Indication: DIURETIC THERAPY
     Dosage: STYRKE: 10 MG/ML. DOSIS: UKENDT.
     Dates: start: 20200512
  2. FENEMAL [Concomitant]
     Active Substance: PHENOBARBITAL
     Indication: MUSCLE SPASMS
     Dosage: STYRKE: UKENDT. DOSIS: UKENDT.
     Dates: start: 20200513, end: 20200514
  3. BENZYLPENICILLIN PANPHARMA [Concomitant]
     Active Substance: PENICILLIN G
     Indication: INFECTION
     Dosage: STYRKE: UKENDT. DOSIS: UKENDT.
     Dates: start: 20200512
  4. GENTAMICIN. [Concomitant]
     Active Substance: GENTAMICIN
     Indication: INFECTION
     Dosage: STYRKE: UKENDT. DOSIS: UKENDT.
     Dates: start: 20200512, end: 20200514
  5. LIDOCAINE. [Suspect]
     Active Substance: LIDOCAINE
     Indication: MUSCLE SPASMS
     Dosage: STYRKE: 5 MG/ML.
     Route: 042
     Dates: start: 20200513, end: 20200514

REACTIONS (2)
  - Cardiac arrest [Recovered/Resolved]
  - Ventricular tachyarrhythmia [Recovered/Resolved]

NARRATIVE: CASE EVENT DATE: 20200514
